FAERS Safety Report 9427577 (Version 1)
Quarter: 2013Q3

REPORT INFORMATION
  Report Type: Report from Study
  Country: US (occurrence: US)
  Receive Date: 20130730
  Receipt Date: 20130730
  Transmission Date: 20140515
  Serious: No
  Sender: FDA-Public Use
  Company Number: US-ABBOTT-12P-163-0976927-00

PATIENT
  Age: 62 Year
  Sex: Female
  Weight: 59.02 kg

DRUGS (10)
  1. NIASPAN (COATED) [Suspect]
     Indication: LOW DENSITY LIPOPROTEIN INCREASED
     Dosage: 500MG FOR A FEW WEEKS
     Dates: start: 201208
  2. NIASPAN (COATED) [Suspect]
     Dosage: 1000MG
  3. NIASPAN (COATED) [Suspect]
     Dosage: 1500MG
  4. ASA [Concomitant]
     Indication: PRODUCT USED FOR UNKNOWN INDICATION
     Dosage: ONLY TOOK ONE TIME
  5. DIOVAN [Concomitant]
     Indication: PRODUCT USED FOR UNKNOWN INDICATION
  6. METOPROLOL [Concomitant]
     Indication: PRODUCT USED FOR UNKNOWN INDICATION
  7. PRILOSEC [Concomitant]
     Indication: PRODUCT USED FOR UNKNOWN INDICATION
  8. ALLEGRA [Concomitant]
     Indication: PRODUCT USED FOR UNKNOWN INDICATION
     Dosage: AT NIGHT
  9. FLUTICASONE [Concomitant]
     Indication: PRODUCT USED FOR UNKNOWN INDICATION
  10. PRESCRIPTION CREAM [Concomitant]
     Indication: PRURITUS ALLERGIC

REACTIONS (1)
  - Flushing [Unknown]
